FAERS Safety Report 5723593-0 (Version None)
Quarter: 2008Q2

REPORT INFORMATION
  Report Type: 
  Country: None (occurrence: None)
  Receive Date: 20080430
  Receipt Date: 20080430
  Transmission Date: 20081010
  Serious: Yes (Other)
  Sender: FDA-Public Use
  Company Number: None

PATIENT
  Age: 34 Year
  Sex: Female
  Weight: 58.7 kg

DRUGS (9)
  1. HEPARIN [Suspect]
     Indication: MOBILITY DECREASED
     Dosage: 5000 MG SC Q12H
     Route: 058
     Dates: start: 20080226
  2. GABAPENTIN [Concomitant]
  3. REGULAR INSULIN [Concomitant]
  4. ESOMEPRAZOLE [Concomitant]
  5. ACCUPRIL [Concomitant]
  6. DOCUSATE [Concomitant]
  7. UNASYN [Concomitant]
  8. VERAPAMIL [Concomitant]
  9. METOPROLOL TARTRATE [Concomitant]

REACTIONS (2)
  - INJECTION SITE BRUISING [None]
  - INJECTION SITE ERYTHEMA [None]
